FAERS Safety Report 6005961-5 (Version None)
Quarter: 2008Q4

REPORT INFORMATION
  Report Type: 
  Country: None (occurrence: None)
  Receive Date: 20081217
  Receipt Date: 20081209
  Transmission Date: 20090506
  Serious: Yes (Hospitalization)
  Sender: FDA-Public Use
  Company Number: PHEH2008US06101

PATIENT
  Sex: Female
  Weight: 55.329 kg

DRUGS (10)
  1. RECLAST [Suspect]
     Dosage: UNK, ONCE/SINGLE USE
     Dates: start: 20080520, end: 20080520
  2. ALBUTEROL [Concomitant]
     Dosage: UNK
  3. ATENOLOL [Concomitant]
     Dosage: UNK, UNK
  4. MIACALCIN [Concomitant]
     Dosage: UNK, UNK
  5. DILTIAZEM [Concomitant]
     Dosage: UNK, UNK
  6. SPIRIVA [Concomitant]
     Dosage: UNK, UNK
  7. DIGOXIN [Concomitant]
     Dosage: UNK, UNK
  8. NITROGLYCERIN [Concomitant]
     Dosage: UNK, UNK
  9. PROTONIX [Concomitant]
     Dosage: UNK, UNK
  10. COUMADIN [Concomitant]
     Dosage: UNK, UNK

REACTIONS (8)
  - ASTHENIA [None]
  - CEREBRAL INFARCTION [None]
  - CONFUSIONAL STATE [None]
  - DIZZINESS [None]
  - FATIGUE [None]
  - MENTAL STATUS CHANGES [None]
  - NECK PAIN [None]
  - PAIN IN EXTREMITY [None]
